FAERS Safety Report 16412207 (Version 3)
Quarter: 2020Q2

REPORT INFORMATION
  Report Type: Report from Study
  Country: ES (occurrence: ES)
  Receive Date: 20190610
  Receipt Date: 20200519
  Transmission Date: 20200713
  Serious: Yes (Other)
  Sender: FDA-Public Use
  Company Number: ES-INCYTE CORPORATION-2019IN005842

PATIENT

DRUGS (17)
  1. ACICLOVIR [Concomitant]
     Active Substance: ACYCLOVIR
     Indication: HERPES ZOSTER
     Dosage: 800 OT, UNK
     Route: 065
     Dates: start: 20181115
  2. ATORVASTATIN [Concomitant]
     Active Substance: ATORVASTATIN
     Indication: ACUTE CORONARY SYNDROME
  3. EMCONCOR [Concomitant]
     Active Substance: BISOPROLOL FUMARATE
     Indication: HYPERTENSION
     Dosage: 2.5 OT, UNK
     Route: 065
     Dates: start: 2012
  4. LANSOPRAZOL [Concomitant]
     Active Substance: LANSOPRAZOLE
     Indication: PROPHYLAXIS
     Dosage: 30 OT, UNK
     Route: 065
     Dates: start: 20180703
  5. AMLODIPINO [Concomitant]
     Active Substance: AMLODIPINE BESYLATE
     Indication: HYPERTENSION
     Dosage: 5 OT, UNK
     Route: 065
  6. AMLODIPINO [Concomitant]
     Active Substance: AMLODIPINE BESYLATE
     Indication: ACUTE CORONARY SYNDROME
  7. CLOPIDOGREL [Concomitant]
     Active Substance: CLOPIDOGREL BISULFATE
     Indication: BUNDLE BRANCH BLOCK LEFT
     Dosage: 75 OT, UNK
     Route: 065
     Dates: start: 2001
  8. ACETYLSALICYLIC ACID [Concomitant]
     Active Substance: ASPIRIN
     Indication: BUNDLE BRANCH BLOCK LEFT
  9. NOVORAPID [Concomitant]
     Active Substance: INSULIN ASPART
     Indication: DIABETES MELLITUS
     Dosage: 100 OT, UNK
     Route: 065
  10. LANTUS [Concomitant]
     Active Substance: INSULIN GLARGINE
     Indication: DIABETES MELLITUS
     Dosage: 100 OT, UNK
     Route: 065
  11. MOMETASONE [Concomitant]
     Active Substance: MOMETASONE
     Indication: PSORIASIS
     Dosage: 100 OT, UNK
     Route: 065
     Dates: start: 20181025
  12. NEOMYCIN. [Concomitant]
     Active Substance: NEOMYCIN
     Indication: SKIN ULCER
     Dosage: UNK
     Route: 065
     Dates: start: 20180801
  13. SILODYX [Concomitant]
     Active Substance: SILODOSIN
     Indication: BENIGN PROSTATIC HYPERPLASIA
     Dosage: 8 OT, UNK
     Route: 065
     Dates: start: 2012
  14. JAKAVI [Suspect]
     Active Substance: RUXOLITINIB
     Indication: POLYCYTHAEMIA VERA
     Dosage: 20 OT, \
     Route: 065
     Dates: start: 20181030
  15. ACETYLSALICYLIC ACID [Concomitant]
     Active Substance: ASPIRIN
     Indication: ACUTE CORONARY SYNDROME
     Dosage: 100 OT, UNK
     Route: 065
     Dates: start: 2013
  16. ATORVASTATIN [Concomitant]
     Active Substance: ATORVASTATIN
     Indication: BUNDLE BRANCH BLOCK LEFT
     Dosage: 20 OT, UNK
     Route: 065
  17. CLOPIDOGREL [Concomitant]
     Active Substance: CLOPIDOGREL BISULFATE
     Indication: ACUTE CORONARY SYNDROME

REACTIONS (4)
  - Anaemia [Not Recovered/Not Resolved]
  - Bradycardia [Recovered/Resolved]
  - Benign prostatic hyperplasia [Recovered/Resolved]
  - Concomitant disease aggravated [Recovered/Resolved]

NARRATIVE: CASE EVENT DATE: 20181115
